FAERS Safety Report 11886413 (Version 1)
Quarter: 2016Q1

REPORT INFORMATION
  Report Type: Spontaneous
  Country: PL (occurrence: PL)
  Receive Date: 20160104
  Receipt Date: 20160104
  Transmission Date: 20160526
  Serious: Yes (Disabling, Other)
  Sender: FDA-Public Use
  Company Number: PL-APOTEX-2015AP015618

PATIENT
  Age: 41 Year
  Sex: Female

DRUGS (4)
  1. METHYLPREDNISOLONE. [Suspect]
     Active Substance: METHYLPREDNISOLONE
     Indication: KIDNEY TRANSPLANT REJECTION
     Dosage: FOR A TOTAL DOSE OF 3.0 G
     Route: 065
  2. MYCOPHENOLATE [Suspect]
     Active Substance: MYCOPHENOLIC ACID
     Dosage: 1250 MG/DAY
     Route: 065
  3. MYCOPHENOLATE [Suspect]
     Active Substance: MYCOPHENOLIC ACID
     Indication: PRODUCT USED FOR UNKNOWN INDICATION
     Dosage: 2000 MG/DAY
     Route: 065
  4. CICLOSPORIN [Suspect]
     Active Substance: CYCLOSPORINE
     Indication: IMMUNOSUPPRESSANT DRUG THERAPY
     Dosage: TROUGH LEVELS 250MICG/L FOR FIRST MONTH; THEN TAPERED TO MAINTENANCE LEVEL OF 100-125MICG/L
     Route: 065

REACTIONS (5)
  - Kidney fibrosis [Unknown]
  - Necrotising herpetic retinopathy [Not Recovered/Not Resolved]
  - Cytomegalovirus infection [Unknown]
  - Renal tubular atrophy [Unknown]
  - Polyomavirus-associated nephropathy [Unknown]
